FAERS Safety Report 9679309 (Version 1)
Quarter: 2013Q4

REPORT INFORMATION
  Report Type: Spontaneous
  Country: US (occurrence: US)
  Receive Date: 20131109
  Receipt Date: 20131109
  Transmission Date: 20140711
  Serious: No
  Sender: FDA-Public Use
  Company Number: US-SANOFI-AVENTIS-2012SA086986

PATIENT
  Age: 91 Year
  Sex: Female

DRUGS (4)
  1. ALLEGRA-D [Suspect]
     Indication: HYPERSENSITIVITY
     Route: 048
     Dates: start: 2012, end: 20121120
  2. PRILOSEC [Concomitant]
  3. GAS X [Concomitant]
  4. PREDNISONE [Concomitant]

REACTIONS (1)
  - Blood pressure increased [Unknown]
